FAERS Safety Report 4550063-8 (Version None)
Quarter: 2005Q1

REPORT INFORMATION
  Report Type: 
  Country: None (occurrence: None)
  Receive Date: 20050107
  Receipt Date: 20041227
  Transmission Date: 20050727
  Serious: No
  Sender: FDA-Public Use
  Company Number: 2004UW18018

PATIENT
  Age: 29 Year
  Sex: Female
  Weight: 69.4003 kg

DRUGS (5)
  1. SEROQUEL [Suspect]
     Indication: OBSESSIVE-COMPULSIVE DISORDER
     Dosage: 50 MG DAILY PO
     Route: 048
     Dates: start: 20020601, end: 20040825
  2. SEROQUEL [Suspect]
     Indication: POST-TRAUMATIC STRESS DISORDER
     Dosage: 50 MG DAILY PO
     Route: 048
     Dates: start: 20020601, end: 20040825
  3. ZOLOFT [Concomitant]
  4. TOPIRAMATE [Concomitant]
  5. ZOMIG [Concomitant]

REACTIONS (3)
  - ABORTION SPONTANEOUS [None]
  - DRUG EXPOSURE DURING PREGNANCY [None]
  - PREGNANCY [None]
